FAERS Safety Report 24254595 (Version 1)
Quarter: 2024Q3

REPORT INFORMATION
  Report Type: Spontaneous
  Country: US (occurrence: None)
  Receive Date: 20240827
  Receipt Date: 20240827
  Transmission Date: 20241017
  Serious: No
  Sender: INFORLIFE
  Company Number: US-INFO-20240251

PATIENT
  Age: 53 Year
  Sex: Female
  Weight: 83.9 kg

DRUGS (1)
  1. ZOLEDRONIC ACID [Suspect]
     Active Substance: ZOLEDRONIC ACID
     Indication: Osteoporosis
     Route: 041
     Dates: start: 20240813

REACTIONS (3)
  - Arthralgia [Unknown]
  - Off label use [Unknown]
  - Pyrexia [Unknown]

NARRATIVE: CASE EVENT DATE: 20240813
